FAERS Safety Report 21395810 (Version 1)
Quarter: 2022Q3

REPORT INFORMATION
  Report Type: Spontaneous
  Country: US (occurrence: None)
  Receive Date: 20220929
  Receipt Date: 20220929
  Transmission Date: 20221026
  Serious: Yes (Hospitalization)
  Sender: FDA-Public Use
  Company Number: None

PATIENT
  Age: 82 Year
  Sex: Male
  Weight: 78.75 kg

DRUGS (3)
  1. JARDIANCE [Suspect]
     Active Substance: EMPAGLIFLOZIN
     Indication: Diabetes mellitus
     Dates: start: 20220831, end: 20220917
  2. METFORMIN [Concomitant]
     Active Substance: METFORMIN HYDROCHLORIDE
  3. TRADJENTA [Concomitant]
     Active Substance: LINAGLIPTIN

REACTIONS (4)
  - Fall [None]
  - Syncope [None]
  - Face injury [None]
  - Cervical vertebral fracture [None]

NARRATIVE: CASE EVENT DATE: 20220917
